FAERS Safety Report 7660975-4 (Version None)
Quarter: 2011Q3

REPORT INFORMATION
  Report Type: 
  Country: None (occurrence: None)
  Receive Date: 20110805
  Receipt Date: 20100930
  Transmission Date: 20111222
  Serious: No
  Sender: FDA-Public Use
  Company Number: US-ABBOTT-10P-163-0675032-00

PATIENT
  Sex: Female
  Weight: 70.37 kg

DRUGS (6)
  1. SIMCOR [Suspect]
     Indication: PRODUCT USED FOR UNKNOWN INDICATION
     Dosage: 500/20 MG 2 TAB QHS
     Dates: start: 20100927
  2. FLU SHOT [Suspect]
     Indication: PRODUCT USED FOR UNKNOWN INDICATION
  3. BLOOD PRESSURE MEDICATION [Concomitant]
     Indication: PRODUCT USED FOR UNKNOWN INDICATION
  4. NIASPAN [Suspect]
  5. NIASPAN [Suspect]
     Indication: HIGH DENSITY LIPOPROTEIN DECREASED
  6. ASPIRIN [Concomitant]
     Indication: PRODUCT USED FOR UNKNOWN INDICATION
     Dosage: 325 MG 1/2 HOUR BEFORE SIMCOR

REACTIONS (5)
  - BLOOD GLUCOSE INCREASED [None]
  - VISUAL IMPAIRMENT [None]
  - DIABETES MELLITUS [None]
  - BLOOD BLISTER [None]
  - INCORRECT DOSE ADMINISTERED [None]
